FAERS Safety Report 5609711-3 (Version None)
Quarter: 2008Q1

REPORT INFORMATION
  Report Type: 
  Country: None (occurrence: None)
  Receive Date: 20080131
  Receipt Date: 20080122
  Transmission Date: 20080703
  Serious: Yes (Other)
  Sender: FDA-Public Use
  Company Number: B0505725A

PATIENT
  Age: 56 Year
  Sex: Female

DRUGS (1)
  1. FLIXOTIDE [Suspect]
     Indication: DRUG USE FOR UNKNOWN INDICATION
     Route: 055

REACTIONS (3)
  - COLITIS [None]
  - RASH [None]
  - VISUAL ACUITY REDUCED [None]
